FAERS Safety Report 8790232 (Version 8)
Quarter: 2016Q1

REPORT INFORMATION
  Report Type: Report from Study
  Country: DE (occurrence: DE)
  Receive Date: 20120917
  Receipt Date: 20160205
  Transmission Date: 20160526
  Serious: Yes (Hospitalization)
  Sender: FDA-Public Use
  Company Number: DE-BAYER-2012-093266

PATIENT
  Age: 15 Year
  Sex: Male
  Weight: 44.9 kg

DRUGS (10)
  1. VOMEX A [DIMENHYDRINATE] [Concomitant]
  2. BETAFERON [Suspect]
     Active Substance: INTERFERON BETA-1B
     Indication: RELAPSING-REMITTING MULTIPLE SCLEROSIS
     Dosage: 250 ?G, QOD
     Dates: start: 20120220
  3. LEVETIRACETAM. [Concomitant]
     Active Substance: LEVETIRACETAM
     Dosage: 500 MG, BID
     Route: 048
     Dates: start: 201307
  4. ASPIRIN. [Concomitant]
     Active Substance: ASPIRIN
     Indication: HEADACHE
     Dosage: UNK, ONCE A MONTH
     Route: 048
     Dates: start: 201401, end: 201401
  5. URBASON [Concomitant]
     Active Substance: METHYLPREDNISOLONE
     Indication: MULTIPLE SCLEROSIS
     Dosage: 900 MG, QD
     Route: 042
     Dates: start: 20120214, end: 20120218
  6. ANTRA [Concomitant]
     Active Substance: OMEPRAZOLE
     Indication: GASTRITIS PROPHYLAXIS
     Dosage: 20 MG, QD
     Route: 048
     Dates: start: 20120214, end: 20120218
  7. DIAMOX [ACETAZOLAMIDE] [Concomitant]
  8. CORTISONE [Suspect]
     Active Substance: CORTISONE\HYDROCORTISONE
     Dosage: UNK
     Dates: start: 201202
  9. DOLORMIN [Concomitant]
     Active Substance: IBUPROFEN
     Indication: INFLUENZA LIKE ILLNESS
     Dosage: 200MG TWICE A MONTH
     Route: 048
     Dates: start: 201206
  10. DICLOFENAC [Concomitant]
     Active Substance: DICLOFENAC
     Indication: PAIN
     Dosage: 50 MG, QD
     Route: 048
     Dates: start: 20120606, end: 20120606

REACTIONS (10)
  - Cerebrovascular disorder [Not Recovered/Not Resolved]
  - Rash [Recovered/Resolved]
  - Benign intracranial hypertension [Recovering/Resolving]
  - Seizure [Recovered/Resolved with Sequelae]
  - Nausea [Recovered/Resolved]
  - Back pain [Recovered/Resolved]
  - Influenza like illness [Unknown]
  - Liver function test increased [Recovering/Resolving]
  - Fatigue [Recovered/Resolved]
  - Headache [Not Recovered/Not Resolved]

NARRATIVE: CASE EVENT DATE: 201202
